FAERS Safety Report 7873496-0 (Version None)
Quarter: 2011Q4

REPORT INFORMATION
  Report Type: 
  Country: None (occurrence: None)
  Receive Date: 20111030
  Receipt Date: 20110504
  Transmission Date: 20120403
  Serious: No
  Sender: FDA-Public Use
  Company Number: US-AMGEN-USASP2011023277

PATIENT

DRUGS (8)
  1. PREDNISONE [Concomitant]
     Dosage: 2.5 MG, UNK
  2. ALLOPURINOL [Concomitant]
     Dosage: 100 MG, UNK
  3. ALEVE [Concomitant]
     Dosage: 220 MG, UNK
  4. ENBREL [Suspect]
     Indication: PRODUCT USED FOR UNKNOWN INDICATION
     Dosage: 50 MG, QWK
     Route: 058
  5. BENAZEPRIL W/HYDROCHLOROTHIAZIDE [Concomitant]
  6. NEURONTIN [Concomitant]
     Dosage: 600 MG, UNK
  7. OXYCONTIN [Concomitant]
     Dosage: 10 MG, UNK
  8. HYDROCODONE/GUAIFENESIN [Concomitant]

REACTIONS (4)
  - HYPERHIDROSIS [None]
  - CONTUSION [None]
  - INJECTION SITE REACTION [None]
  - INJECTION SITE ERYTHEMA [None]
